FAERS Safety Report 17086405 (Version 1)
Quarter: 2019Q4

REPORT INFORMATION
  Report Type: Spontaneous
  Country: US (occurrence: US)
  Receive Date: 20191127
  Receipt Date: 20191127
  Transmission Date: 20200122
  Serious: Yes (Other)
  Sender: FDA-Public Use
  Company Number: None

PATIENT
  Age: 49 Year
  Sex: Male
  Weight: 49.5 kg

DRUGS (1)
  1. RHOPRESSA [Suspect]
     Active Substance: NETARSUDIL MESYLATE
     Indication: GLAUCOMA
     Dosage: ?          QUANTITY:2.5 ML;?
     Dates: start: 20190901, end: 20191116

REACTIONS (4)
  - Eye pruritus [None]
  - Ocular hyperaemia [None]
  - Eye irritation [None]
  - Eyelids pruritus [None]

NARRATIVE: CASE EVENT DATE: 20191116
